FAERS Safety Report 10950006 (Version 7)
Quarter: 2015Q4

REPORT INFORMATION
  Report Type: Report from Study
  Country: US (occurrence: US)
  Receive Date: 20150324
  Receipt Date: 20151201
  Transmission Date: 20160304
  Serious: Yes (Other)
  Sender: FDA-Public Use
  Company Number: US-EXELIXIS-CABO-14004757

PATIENT
  Age: 81 Year
  Sex: Male
  Weight: 73.63 kg

DRUGS (6)
  1. COMETRIQ [Suspect]
     Active Substance: CABOZANTINIB S-MALATE
     Dosage: 100 MG, QD
     Route: 048
     Dates: start: 20150623, end: 20150715
  2. COMETRIQ [Suspect]
     Active Substance: CABOZANTINIB S-MALATE
     Dosage: 140 MG, QD
     Route: 048
     Dates: start: 20141124
  3. COMETRIQ [Suspect]
     Active Substance: CABOZANTINIB S-MALATE
     Indication: THYROID CANCER
     Dosage: 140 MG, QD
     Route: 048
     Dates: start: 20140827, end: 20141023
  4. COMETRIQ [Suspect]
     Active Substance: CABOZANTINIB S-MALATE
     Dosage: 140 MG, QD
     Route: 048
     Dates: end: 20150519
  5. COMETRIQ [Suspect]
     Active Substance: CABOZANTINIB S-MALATE
     Dosage: 60 MG, QD
     Route: 048
     Dates: start: 201508, end: 20150822
  6. ZOMETA [Concomitant]
     Active Substance: ZOLEDRONIC ACID

REACTIONS (16)
  - Cellulitis [Unknown]
  - Memory impairment [Unknown]
  - Abdominal pain [Unknown]
  - Bile duct obstruction [Unknown]
  - Malignant neoplasm progression [Unknown]
  - Pyrexia [Unknown]
  - Cough [Unknown]
  - Sepsis [Unknown]
  - Malaise [Unknown]
  - Haemoglobin decreased [Unknown]
  - Fatigue [Unknown]
  - Anxiety [Unknown]
  - International normalised ratio increased [Unknown]
  - Diarrhoea [Not Recovered/Not Resolved]
  - Enterocolitis bacterial [Unknown]
  - Asthenia [Unknown]

NARRATIVE: CASE EVENT DATE: 2014
